FAERS Safety Report 4477109-X (Version None)
Quarter: 2004Q4

REPORT INFORMATION
  Report Type: 
  Country: None (occurrence: None)
  Receive Date: 20041012
  Receipt Date: 20041001
  Transmission Date: 20050328
  Serious: Yes (Other)
  Sender: FDA-Public Use
  Company Number: 163-20785-04100144

PATIENT
  Sex: 0

DRUGS (2)
  1. THALOMID [Suspect]
     Indication: GLIOBLASTOMA MULTIFORME
     Dosage: 200MG/D TITRATION OF 100-200MG/D Q 1-2 W UP TO 1200MG/D (CYCLE=8W), ORAL
     Route: 048
  2. RADIATION THERAPY [Suspect]
     Indication: GLIOBLASTOMA MULTIFORME
     Dosage: TOTAL 6 GY OVER 6 WEEKS

REACTIONS (7)
  - DIZZINESS [None]
  - DYSKINESIA [None]
  - EXTRAPYRAMIDAL DISORDER [None]
  - NAUSEA [None]
  - NEUROPATHIC PAIN [None]
  - PERIPHERAL SENSORY NEUROPATHY [None]
  - RESTLESSNESS [None]
